FAERS Safety Report 5929664-8 (Version None)
Quarter: 2008Q4

REPORT INFORMATION
  Report Type: 
  Country: None (occurrence: None)
  Receive Date: 20081024
  Receipt Date: 20081014
  Transmission Date: 20090506
  Serious: Yes (Death, Hospitalization, Other)
  Sender: FDA-Public Use
  Company Number: AU-BRISTOL-MYERS SQUIBB COMPANY-14203822

PATIENT
  Age: 51 Year
  Sex: Male
  Weight: 112 kg

DRUGS (12)
  1. BRIVANIB ALANINATE [Suspect]
     Indication: RECTOSIGMOID CANCER
     Dosage: INTERRUPTED 21-MAY-2008; ADMINISTERED 02-JUN-2008 TO 10-JUN-2008
     Route: 048
     Dates: start: 20080505, end: 20080610
  2. CETUXIMAB [Suspect]
     Indication: RECTOSIGMOID CANCER
     Dosage: LOADING DOSE: 855MG WK 1 05MAY08; 535MG/WK MAINTENANCE ON 12MAY08, 19MAY08; 535MG ON 02JUN08
     Route: 042
     Dates: start: 20080519, end: 20080602
  3. PLACEBO [Suspect]
     Indication: RECTOSIGMOID CANCER
     Dosage: INTERRUPTED 21-MAY-2008; ADMINISTERED 02-JUN-2008 TO 10-JUN-2008
     Route: 048
     Dates: start: 20080505, end: 20080610
  4. ALLOPURINOL [Concomitant]
     Indication: HYPERURICAEMIA
     Dates: start: 19980101
  5. CORTISONE ACETATE [Concomitant]
     Indication: INFLAMMATION
     Dates: start: 20070201
  6. VITAMIN K TAB [Concomitant]
     Dates: start: 20080430
  7. CLEXANE [Concomitant]
     Indication: THROMBOSIS PROPHYLAXIS
     Route: 058
     Dates: start: 20070201, end: 20080529
  8. MINOCYCLINE HCL [Concomitant]
     Indication: ACNE
     Dates: start: 20080514, end: 20080520
  9. SOMAC [Concomitant]
     Indication: NAUSEA
     Dates: start: 20080514
  10. COLOXYL + SENNA [Concomitant]
     Indication: NAUSEA
     Dates: start: 20080601
  11. MS CONTIN [Concomitant]
     Indication: PAIN
     Dates: start: 20080601
  12. ENDONE [Concomitant]
     Indication: PAIN
     Dates: start: 20080514

REACTIONS (7)
  - ACNE [None]
  - BLOOD POTASSIUM INCREASED [None]
  - GASTROINTESTINAL HAEMORRHAGE [None]
  - HAEMOGLOBIN DECREASED [None]
  - LEUKOCYTOCLASTIC VASCULITIS [None]
  - MALIGNANT NEOPLASM PROGRESSION [None]
  - OEDEMA PERIPHERAL [None]
